FAERS Safety Report 6305498-X (Version None)
Quarter: 2009Q3

REPORT INFORMATION
  Report Type: 
  Country: None (occurrence: None)
  Receive Date: 20090807
  Receipt Date: 20090726
  Transmission Date: 20100115
  Serious: Yes (Death)
  Sender: FDA-Public Use
  Company Number: CERZ-11510

PATIENT
  Age: 5 Year
  Sex: Male
  Weight: 15 kg

DRUGS (9)
  1. CEREZYME [Suspect]
     Indication: GAUCHER'S DISEASE
     Dosage: 1000 U, Q2W, INTRAVENOUS
     Route: 042
  2. FAMOTIDINE [Concomitant]
  3. AMBROXOL HYDROCHLORIDE (AMBROXOL HYDROCHLORIDE) [Concomitant]
  4. CARBOCISTEINE (CARBOCISTEINE) [Concomitant]
  5. CARBAMAZEPINE [Concomitant]
  6. CLOBAZAM (CLOBAZAM) [Concomitant]
  7. ERYTHROMYCIN [Concomitant]
  8. TULOBUTEROL (TULOBUTEROL) [Concomitant]
  9. OMEPRAZOLE [Concomitant]

REACTIONS (2)
  - CONVULSION [None]
  - RESPIRATORY FAILURE [None]
